FAERS Safety Report 8795720 (Version 1)
Quarter: 2012Q4

REPORT INFORMATION
  Report Type: 
  Country: US (occurrence: US)
  Receive Date: 20120919
  Receipt Date: 20120919
  Transmission Date: 20130627
  Serious: No
  Sender: FDA-Public Use
  Company Number: US-BAYER-2012-096989

PATIENT
  Sex: Female
  Weight: 72.56 kg

DRUGS (3)
  1. BETASERON [Suspect]
     Dosage: UNK UNK, QOD
     Route: 058
  2. ALEVE CAPLET/TABLET,MIDOL EXTENDED RELIEF CAPLET [Concomitant]
  3. PREDNISONE [Concomitant]
     Dosage: 10 mg, UNK

REACTIONS (4)
  - Musculoskeletal stiffness [Unknown]
  - Mobility decreased [Unknown]
  - Memory impairment [Unknown]
  - Hypoaesthesia [Unknown]
